FAERS Safety Report 13022852 (Version 1)
Quarter: 2016Q4

REPORT INFORMATION
  Report Type: Report from Study
  Country: DK (occurrence: DK)
  Receive Date: 20161213
  Receipt Date: 20161213
  Transmission Date: 20170207
  Serious: Yes (Other)
  Sender: FDA-Public Use
  Company Number: DK-GLAXOSMITHKLINE-DK2016GSK183846

PATIENT

DRUGS (1)
  1. CEFUROXIME. [Suspect]
     Active Substance: CEFUROXIME
     Indication: EYE OPERATION

REACTIONS (5)
  - Haemorrhage [Unknown]
  - Toxicity to various agents [Unknown]
  - Retinal infarction [Unknown]
  - Optic atrophy [Unknown]
  - Overdose [Unknown]
